FAERS Safety Report 7550321-9 (Version None)
Quarter: 2011Q2

REPORT INFORMATION
  Report Type: 
  Country: None (occurrence: None)
  Receive Date: 20110615
  Receipt Date: 20110531
  Transmission Date: 20111010
  Serious: Yes (Other)
  Sender: FDA-Public Use
  Company Number: US-BAYER-2011-047387

PATIENT
  Age: 90 Year
  Sex: Female
  Weight: 74.83 kg

DRUGS (2)
  1. BAYER EXTRA STRENGTH BACK + BODY PAIN [Suspect]
     Indication: BACK PAIN
     Dosage: 1 DF, QD, BOTTLE COUNT 50S
     Route: 048
     Dates: start: 20110527, end: 20110527
  2. LEVOTHYROXINE SODIUM [Concomitant]
     Dosage: 1 DF, QD
     Route: 048

REACTIONS (4)
  - AMNESIA [None]
  - ASTHENIA [None]
  - LIMB DISCOMFORT [None]
  - DIZZINESS [None]
